FAERS Safety Report 5236322-4 (Version None)
Quarter: 2007Q1

REPORT INFORMATION
  Report Type: 
  Country: None (occurrence: None)
  Receive Date: 20061208
  Receipt Date: 20050808
  Transmission Date: 20070707
  Serious: Yes (Other)
  Sender: FDA-Public Use
  Company Number: 2005UW10614

PATIENT
  Age: 86 Year
  Sex: Male
  Weight: 67.586 kg

DRUGS (1)
  1. CRESTOR [Suspect]
     Indication: HYPERCHOLESTEROLAEMIA
     Dosage: 5 MG DAILY PO
     Route: 048
     Dates: start: 20050427, end: 20050620

REACTIONS (1)
  - NIGHTMARE [None]
